FAERS Safety Report 17623239 (Version 1)
Quarter: 2020Q2

REPORT INFORMATION
  Report Type: Other
  Country: CH (occurrence: CH)
  Receive Date: 20200403
  Receipt Date: 20200403
  Transmission Date: 20200713
  Serious: Yes (Death, Other)
  Sender: FDA-Public Use
  Company Number: CH-TOPROL ACQUISITION LLC-2020-TOP-000208

PATIENT
  Age: 83 Year
  Sex: Male

DRUGS (15)
  1. HALDOL [Suspect]
     Active Substance: HALOPERIDOL
     Dosage: DECREASED
     Route: 048
  2. TEMESTA                            /00273201/ [Concomitant]
     Active Substance: LORAZEPAM
     Indication: ABNORMAL BEHAVIOUR
     Dosage: 1 MG, UNK
     Route: 058
     Dates: start: 20170918
  3. MAGNESIUM [Concomitant]
     Active Substance: MAGNESIUM
     Dosage: 5 MMOL, BID
  4. METOPROLOL SUCCINATE. [Suspect]
     Active Substance: METOPROLOL SUCCINATE
     Indication: PRODUCT USED FOR UNKNOWN INDICATION
     Dosage: 7.5 MG, QD
     Route: 048
  5. HALDOL [Suspect]
     Active Substance: HALOPERIDOL
     Indication: ABNORMAL BEHAVIOUR
     Dosage: 1 MG, UNK
     Route: 058
  6. DISTRANEURIN                       /00027502/ [Suspect]
     Active Substance: CLOMETHIAZOLE
     Indication: PRODUCT USED FOR UNKNOWN INDICATION
     Dosage: 192 MG, QD
     Route: 048
  7. SORBITOL. [Concomitant]
     Active Substance: SORBITOL
     Dosage: 15 ML, QD
  8. HALDOL [Suspect]
     Active Substance: HALOPERIDOL
     Dosage: 0.5 MG, BID
     Route: 048
  9. ALDACTONE [Concomitant]
     Active Substance: SPIRONOLACTONE
     Dosage: 12.5 MG, QD
  10. APIXABAN [Suspect]
     Active Substance: APIXABAN
     Indication: PROPHYLAXIS
     Dosage: 2.5 MG, BID
     Dates: start: 201706, end: 201709
  11. HALDOL [Suspect]
     Active Substance: HALOPERIDOL
     Dosage: 1.5 MG, BID
     Route: 048
     Dates: start: 20171004
  12. TORASEMIDE [Concomitant]
     Active Substance: TORSEMIDE
     Dosage: 5 MG, QD
  13. TEMGESIC [Concomitant]
     Active Substance: BUPRENORPHINE HYDROCHLORIDE
     Dosage: 0.1 MG, TID
     Route: 060
  14. XARELTO [Suspect]
     Active Substance: RIVAROXABAN
     Indication: PRODUCT USED FOR UNKNOWN INDICATION
     Dosage: 20 MG, QD
     Route: 048
     Dates: start: 201702
  15. DAFALGAN [Suspect]
     Active Substance: ACETAMINOPHEN
     Indication: PRODUCT USED FOR UNKNOWN INDICATION
     Dosage: 1000 MG, TID
     Route: 048
     Dates: end: 20171009

REACTIONS (2)
  - Condition aggravated [Not Recovered/Not Resolved]
  - Hepatic enzyme increased [Not Recovered/Not Resolved]

NARRATIVE: CASE EVENT DATE: 201707
